FAERS Safety Report 9159646 (Version 1)
Quarter: 2013Q1

REPORT INFORMATION
  Report Type: Spontaneous
  Country: US (occurrence: None)
  Receive Date: 20130312
  Receipt Date: 20130312
  Transmission Date: 20140127
  Serious: Yes (Death)
  Sender: FDA-Public Use
  Company Number: None

PATIENT
  Age: 82 Year
  Sex: Female
  Weight: 63.05 kg

DRUGS (2)
  1. PRADAXA -DABIGATRIN- 75MG BOEHRINGER  INGELHEIM [Suspect]
     Indication: ATRIAL FIBRILLATION
     Dosage: ONE CAPSULES TWICE A DAY PO
     Route: 048
     Dates: start: 20130226, end: 20130227
  2. PRADAXA -DABIGATRIN- 75MG BOEHRINGER  INGELHEIM [Suspect]
     Indication: EMBOLIC STROKE
     Dosage: ONE CAPSULES TWICE A DAY PO
     Route: 048
     Dates: start: 20130226, end: 20130227

REACTIONS (2)
  - Headache [None]
  - Unresponsive to stimuli [None]
